FAERS Safety Report 8935570 (Version 1)
Quarter: 2012Q4

REPORT INFORMATION
  Report Type: 
  Country: BR (occurrence: BR)
  Receive Date: 20121130
  Receipt Date: 20121130
  Transmission Date: 20130627
  Serious: Yes (Other)
  Sender: FDA-Public Use
  Company Number: BR-NOVOPROD-359294

PATIENT
  Age: 41 Year
  Sex: Female
  Weight: 73 kg

DRUGS (6)
  1. VICTOZA [Suspect]
     Indication: GLUCOSE TOLERANCE IMPAIRED
     Dosage: 0.6 mg, qd for 2 weeks
     Route: 065
     Dates: start: 201207
  2. VICTOZA [Suspect]
     Dosage: 1.8 mg, qd
     Route: 065
     Dates: end: 201210
  3. GESTINOL [Concomitant]
     Indication: OVARIAN CYST
     Dosage: 1 Tab, qd
  4. ANALOR [Concomitant]
     Indication: HEADACHE
     Dosage: 1 Tab, qd
  5. CEFALIV [Concomitant]
     Indication: HEADACHE
     Dosage: 1 Tab, qd
     Dates: start: 20120921
  6. CEFALIV [Concomitant]
     Dosage: during crisis taking a maximum dosage of 4 tablets daily

REACTIONS (5)
  - Arrhythmia [Recovered/Resolved]
  - Pallor [Recovered/Resolved]
  - Asthenia [Recovered/Resolved]
  - Headache [Recovered/Resolved]
  - Nausea [Recovered/Resolved]
